FAERS Safety Report 12089146 (Version 1)
Quarter: 2016Q1

REPORT INFORMATION
  Report Type: Spontaneous
  Country: US (occurrence: None)
  Receive Date: 20160217
  Receipt Date: 20160217
  Transmission Date: 20160526
  Serious: Yes (Other)
  Sender: FDA-Public Use
  Company Number: None

PATIENT
  Sex: Male
  Weight: 56.7 kg

DRUGS (1)
  1. CIPRO [Suspect]
     Active Substance: CIPROFLOXACIN HYDROCHLORIDE
     Indication: INFECTION PROPHYLAXIS
     Dosage: 1 PER DAY 1 PER DAY IV THEN PILL
     Route: 042

REACTIONS (13)
  - Urticaria [None]
  - Hypersensitivity [None]
  - Asthenia [None]
  - Alopecia [None]
  - Constipation [None]
  - Stevens-Johnson syndrome [None]
  - Rectal haemorrhage [None]
  - Rash macular [None]
  - Injection site rash [None]
  - Injection site pruritus [None]
  - Dry skin [None]
  - Weight decreased [None]
  - Anal incontinence [None]
